FAERS Safety Report 24713018 (Version 1)
Quarter: 2024Q4

REPORT INFORMATION
  Report Type: Spontaneous
  Country: US (occurrence: None)
  Receive Date: 20241208
  Receipt Date: 20241208
  Transmission Date: 20250115
  Serious: No
  Sender: Public
  Company Number: None

PATIENT
  Age: 44 Year
  Sex: Male
  Weight: 148.5 kg

DRUGS (2)
  1. WEGOVY [Suspect]
     Active Substance: SEMAGLUTIDE
     Dates: start: 20241201, end: 20241208
  2. BUPROPION [Concomitant]
     Active Substance: BUPROPION

REACTIONS (3)
  - Suicidal ideation [None]
  - Therapy cessation [None]
  - Anxiety [None]

NARRATIVE: CASE EVENT DATE: 20241201
